FAERS Safety Report 5407273-7 (Version None)
Quarter: 2007Q3

REPORT INFORMATION
  Report Type: 
  Country: None (occurrence: None)
  Receive Date: 20070807
  Receipt Date: 20070802
  Transmission Date: 20080115
  Serious: Yes (Hospitalization)
  Sender: FDA-Public Use
  Company Number: US-BAXTER-2007BH006680

PATIENT
  Sex: Male

DRUGS (1)
  1. PHENYTOIN [Suspect]
     Indication: DRUG USE FOR UNKNOWN INDICATION
     Dosage: DOSE UNIT:UNKNOWN
     Route: 065
     Dates: start: 20050301, end: 20050401

REACTIONS (5)
  - ASTHENIA [None]
  - EMOTIONAL DISTRESS [None]
  - EYE INJURY [None]
  - PAIN [None]
  - STEVENS-JOHNSON SYNDROME [None]
